FAERS Safety Report 24166647 (Version 2)
Quarter: 2024Q3

REPORT INFORMATION
  Report Type: Spontaneous
  Country: TR (occurrence: TR)
  Receive Date: 20240802
  Receipt Date: 20240925
  Transmission Date: 20241016
  Serious: Yes (Other)
  Sender: AMGEN
  Company Number: TR-PFIZER INC-202400222541

PATIENT
  Age: 46 Year
  Sex: Male

DRUGS (2)
  1. ENBREL [Suspect]
     Active Substance: ETANERCEPT
     Indication: Product used for unknown indication
     Dosage: UNK
     Route: 065
     Dates: start: 2014, end: 2016
  2. DELTACORTRIL [Suspect]
     Active Substance: PREDNISOLONE
     Indication: Ankylosing spondylitis
     Dosage: 5 MILLIGRAM
     Route: 065

REACTIONS (4)
  - Pelvic fracture [Unknown]
  - Hip fracture [Unknown]
  - Osteoporotic fracture [Unknown]
  - Stress fracture [Unknown]
